FAERS Safety Report 4287084-9 (Version None)
Quarter: 2004Q1

REPORT INFORMATION
  Report Type: 
  Country: None (occurrence: None)
  Receive Date: 20040121
  Receipt Date: 20030620
  Transmission Date: 20041129
  Serious: Yes (Death, Life-Threatening, Hospitalization)
  Sender: FDA-Public Use
  Company Number: A03200301373

PATIENT
  Age: 71 Year
  Sex: Female
  Weight: 72.5755 kg

DRUGS (4)
  1. PLAVIX [Suspect]
     Indication: CEREBROVASCULAR ACCIDENT PROPHYLAXIS
     Dosage: 75 MG QD - ORAL
     Route: 048
     Dates: start: 20011225
  2. CEPHALEXIN MONOHYDRATE [Concomitant]
  3. HERBALIFE PRODUCTS [Concomitant]
  4. ^OTHER MEDICATIONS^ [Concomitant]

REACTIONS (1)
  - CEREBROVASCULAR ACCIDENT [None]
